FAERS Safety Report 12402353 (Version 2)
Quarter: 2016Q2

REPORT INFORMATION
  Report Type: Spontaneous
  Country: IE (occurrence: IE)
  Receive Date: 20160525
  Receipt Date: 20160601
  Transmission Date: 20160815
  Serious: Yes (Other)
  Sender: FDA-Public Use
  Company Number: IE-B.I. PHARMACEUTICALS,INC./RIDGEFIELD-2016-BI-32552UK

PATIENT
  Age: 76 Year
  Sex: Male

DRUGS (2)
  1. JENTADUETO [Suspect]
     Active Substance: LINAGLIPTIN\METFORMIN HYDROCHLORIDE
     Indication: PRODUCT USED FOR UNKNOWN INDICATION
     Dosage: STRENGTH/DOSE PER APPLICATION: 2.5 MG/ 850 MG; FORMULATION: FILM-COATED TABLETS
     Route: 048
  2. TRADJENTA [Suspect]
     Active Substance: LINAGLIPTIN
     Indication: TYPE 2 DIABETES MELLITUS
     Dosage: FORMULATION:FILM-COATED TABLET
     Route: 048
     Dates: start: 201510

REACTIONS (1)
  - Pancreatic carcinoma [Not Recovered/Not Resolved]
